FAERS Safety Report 10226561 (Version 2)
Quarter: 2014Q2

REPORT INFORMATION
  Report Type: Spontaneous
  Country: US (occurrence: US)
  Receive Date: 20140609
  Receipt Date: 20140609
  Transmission Date: 20141212
  Serious: No
  Sender: FDA-Public Use
  Company Number: US-AMGEN INC.-USASP2014002428

PATIENT
  Age: 76 Year
  Sex: Male

DRUGS (1)
  1. PROCRIT [Suspect]
     Indication: ANAEMIA
     Dosage: 60000 UNIT, QWK
     Route: 058

REACTIONS (1)
  - Drug ineffective [Unknown]
